FAERS Safety Report 18902852 (Version 2)
Quarter: 2021Q1

REPORT INFORMATION
  Report Type: Spontaneous
  Country: JP (occurrence: JP)
  Receive Date: 20210217
  Receipt Date: 20210330
  Transmission Date: 20210420
  Serious: Yes (Other)
  Sender: FDA-Public Use
  Company Number: NVSJ2021JP002321

PATIENT
  Age: 77 Year
  Sex: Female

DRUGS (3)
  1. VOLTAREN [Suspect]
     Active Substance: DICLOFENAC SODIUM
     Indication: BACK PAIN
     Dosage: 37.5 MG, BID
     Route: 048
  2. VOLTAREN SUP [Suspect]
     Active Substance: DICLOFENAC SODIUM
     Indication: PAIN
     Dosage: 25 MG, PRN
     Route: 054
  3. VOLTAREN SUP [Suspect]
     Active Substance: DICLOFENAC SODIUM
     Dosage: 50 MG, PRN
     Route: 054

REACTIONS (2)
  - Therapeutic product effect incomplete [Unknown]
  - Pain [Unknown]
